FAERS Safety Report 4366007-8 (Version None)
Quarter: 2004Q2

REPORT INFORMATION
  Report Type: 
  Country: None (occurrence: None)
  Receive Date: 20040524
  Receipt Date: 20040224
  Transmission Date: 20050107
  Serious: No
  Sender: FDA-Public Use
  Company Number: SU-2004-002161

PATIENT
  Age: 59 Year
  Sex: Female
  Weight: 68.0396 kg

DRUGS (6)
  1. BENICAR [Suspect]
     Indication: HYPERTENSION
     Dosage: 10 MG QD PO
     Route: 048
     Dates: start: 20040216, end: 20040219
  2. BENICAR [Suspect]
     Dosage: 10 MG QD PO
     Route: 048
     Dates: start: 20040222, end: 20040224
  3. LASIX [Concomitant]
  4. PREMARIN [Concomitant]
  5. PROVERA [Concomitant]
  6. ACIPHEX [Concomitant]

REACTIONS (16)
  - ARTHRALGIA [None]
  - CHEST PAIN [None]
  - DIZZINESS [None]
  - EXERCISE TOLERANCE DECREASED [None]
  - FATIGUE [None]
  - GASTROINTESTINAL DISORDER [None]
  - HEADACHE [None]
  - HYPOAESTHESIA [None]
  - JOINT SWELLING [None]
  - MYALGIA [None]
  - NECK PAIN [None]
  - NIGHTMARE [None]
  - OEDEMA PERIPHERAL [None]
  - PAIN IN EXTREMITY [None]
  - PERIPHERAL COLDNESS [None]
  - SWELLING FACE [None]
